FAERS Safety Report 25937246 (Version 1)
Quarter: 2025Q4

REPORT INFORMATION
  Report Type: Other
  Country: US (occurrence: US)
  Receive Date: 20251017
  Receipt Date: 20251017
  Transmission Date: 20260117
  Serious: Yes (Other)
  Sender: HLS THERAPEUTICS
  Company Number: US-HLS-202500353

PATIENT
  Age: 25 Year
  Sex: Male

DRUGS (15)
  1. CLOZAPINE [Suspect]
     Active Substance: CLOZAPINE
     Indication: Product used for unknown indication
     Route: 065
     Dates: start: 202312
  2. CLOZAPINE [Suspect]
     Active Substance: CLOZAPINE
     Indication: Product used for unknown indication
     Route: 065
     Dates: start: 2024
  3. CLOZAPINE [Suspect]
     Active Substance: CLOZAPINE
     Indication: Product used for unknown indication
     Route: 065
     Dates: start: 202011, end: 202012
  4. CLOZAPINE [Suspect]
     Active Substance: CLOZAPINE
     Indication: Product used for unknown indication
     Route: 065
     Dates: start: 20180706, end: 202011
  5. LITHIUM CARBONATE [Suspect]
     Active Substance: LITHIUM CARBONATE
     Indication: Product used for unknown indication
     Route: 065
     Dates: start: 20180706, end: 2021
  6. OXCARBAZEPINE [Suspect]
     Active Substance: OXCARBAZEPINE
     Indication: Product used for unknown indication
     Route: 065
     Dates: start: 2020, end: 2021
  7. VALPROATE SODIUM [Suspect]
     Active Substance: VALPROATE SODIUM
     Indication: Product used for unknown indication
     Route: 065
     Dates: start: 2020, end: 2023
  8. OLANZAPINE [Suspect]
     Active Substance: OLANZAPINE
     Indication: Product used for unknown indication
     Route: 065
  9. OLANZAPINE [Suspect]
     Active Substance: OLANZAPINE
     Indication: Product used for unknown indication
     Route: 065
     Dates: start: 202301, end: 2023
  10. QUETIAPINE [Suspect]
     Active Substance: QUETIAPINE
     Indication: Product used for unknown indication
     Route: 065
     Dates: start: 2020, end: 2021
  11. RISPERIDONE [Suspect]
     Active Substance: RISPERIDONE
     Indication: Product used for unknown indication
     Route: 065
     Dates: start: 2020, end: 2020
  12. RISPERIDONE [Suspect]
     Active Substance: RISPERIDONE
     Indication: Product used for unknown indication
     Route: 065
     Dates: start: 202301
  13. LAMOTRIGINE [Suspect]
     Active Substance: LAMOTRIGINE
     Indication: Product used for unknown indication
     Dosage: INCREASED TO 150MG IN DEC-2023
     Route: 065
     Dates: start: 202303
  14. BLONANSERIN [Suspect]
     Active Substance: BLONANSERIN
     Indication: Product used for unknown indication
     Dosage: INCREASED TO 24 MG/DAY IN 2024
     Route: 065
     Dates: start: 202303
  15. AMISULPRIDE [Suspect]
     Active Substance: AMISULPRIDE
     Indication: Product used for unknown indication
     Route: 065
     Dates: start: 2023

REACTIONS (7)
  - Hallucination, auditory [Recovering/Resolving]
  - Therapeutic product effect incomplete [Unknown]
  - Schizophrenia [Unknown]
  - Delusion [Recovering/Resolving]
  - Seizure [Unknown]
  - Syncope [Recovered/Resolved]
  - Aggression [Unknown]

NARRATIVE: CASE EVENT DATE: 20240201
